FAERS Safety Report 4439680-3 (Version None)
Quarter: 2004Q3

REPORT INFORMATION
  Report Type: 
  Country: None (occurrence: None)
  Receive Date: 20040831
  Receipt Date: 20040816
  Transmission Date: 20050211
  Serious: Yes (Death)
  Sender: FDA-Public Use
  Company Number: 2004AP03109

PATIENT
  Age: 70 Year
  Sex: Male

DRUGS (3)
  1. SEROQUEL [Suspect]
     Indication: DELIRIUM
     Dosage: 50 MG DAILY PO
     Route: 048
     Dates: start: 20040603
  2. SEROQUEL [Suspect]
     Indication: POST PROCEDURAL COMPLICATION
     Dosage: 50 MG DAILY PO
     Route: 048
     Dates: start: 20040603
  3. DORAL [Concomitant]

REACTIONS (2)
  - DYSPHAGIA [None]
  - FOREIGN BODY ASPIRATION [None]
